FAERS Safety Report 4506029-7 (Version None)
Quarter: 2004Q4

REPORT INFORMATION
  Report Type: 
  Country: None (occurrence: None)
  Receive Date: 20041025
  Receipt Date: 20030912
  Transmission Date: 20050328
  Serious: Yes (Other)
  Sender: FDA-Public Use
  Company Number: US-JNJFOC-20030704257

PATIENT
  Age: 65 Year

DRUGS (7)
  1. REMICADE [Suspect]
     Indication: RHEUMATOID ARTHRITIS
     Dosage: INTRAVENOUS
     Route: 042
     Dates: start: 20030206
  2. PREDNISONE [Concomitant]
  3. HYDROCHLOROTHIAZIDE [Concomitant]
  4. METHOTREXATE [Concomitant]
  5. FOLIC ACID [Concomitant]
  6. BENADRYL ALLERGY (BENADRYL ALLERGY) [Concomitant]
  7. TYLENOL [Concomitant]

REACTIONS (2)
  - ANTINUCLEAR ANTIBODY POSITIVE [None]
  - RASH [None]
